FAERS Safety Report 14655073 (Version 1)
Quarter: 2018Q1

REPORT INFORMATION
  Report Type: Spontaneous
  Country: US (occurrence: US)
  Receive Date: 20180319
  Receipt Date: 20180319
  Transmission Date: 20180509
  Serious: Yes (Hospitalization, Other)
  Sender: FDA-Public Use
  Company Number: US-AUROBINDO-AUR-APL-2018-013870

PATIENT
  Age: 74 Year
  Sex: Female

DRUGS (23)
  1. LIDOCAINE. [Suspect]
     Active Substance: LIDOCAINE
     Indication: PAIN
     Dosage: APPLIED THE CREAM OVER HER UPPER BODY, ARMS, PERINEUM, AND VULVA ()
     Route: 061
  2. LIDOCAINE. [Suspect]
     Active Substance: LIDOCAINE
     Dosage: APPLIED PERI-VAGINALLY
     Route: 061
  3. LIOTHYRONINE [Concomitant]
     Active Substance: LIOTHYRONINE
     Indication: PRODUCT USED FOR UNKNOWN INDICATION
     Dosage: 5 MICROGRAM, ONCE A DAY
  4. PREGABALIN. [Concomitant]
     Active Substance: PREGABALIN
     Indication: PRODUCT USED FOR UNKNOWN INDICATION
     Dosage: 75 MILLIGRAM, ONCE A DAY, NIGHTLY
  5. LORAZEPAM. [Concomitant]
     Active Substance: LORAZEPAM
     Indication: PRODUCT USED FOR UNKNOWN INDICATION
     Dosage: 0.5 MILLIGRAM, AS NECESSARY, TWICE DAILY AS NEEDED
  6. KETAMINE [Suspect]
     Active Substance: KETAMINE
     Indication: PAIN
     Dosage: APPLIED THE CREAM OVER HER UPPER BODY, ARMS, PERINEUM, AND VULVA ()
     Route: 061
  7. KETAMINE [Suspect]
     Active Substance: KETAMINE
     Dosage: APPLIED PERI-VAGINALLY ()
     Route: 061
  8. KETOPROFEN 50 MG [Suspect]
     Active Substance: KETOPROFEN
     Indication: PAIN
     Dosage: APPLIED THE CREAM OVER HER UPPER BODY, ARMS, PERINEUM, AND VULVA ()
     Route: 061
  9. KETOPROFEN 50 MG [Suspect]
     Active Substance: KETOPROFEN
     Dosage: APPLIED PERI-VAGINALLY
     Route: 061
  10. RISPERIDONE. [Concomitant]
     Active Substance: RISPERIDONE
     Indication: PRODUCT USED FOR UNKNOWN INDICATION
     Dosage: 0.5 MILLIGRAM, AS NECESSARY, EVERY 8H AS NEEDED
  11. CALCIUM VITAMIN D [Concomitant]
     Active Substance: CALCIUM\VITAMIN D
     Indication: PRODUCT USED FOR UNKNOWN INDICATION
     Dosage: UNK
  12. ESTROGENS CONJUGATED [Concomitant]
     Active Substance: ESTROGENS, CONJUGATED
     Indication: PRODUCT USED FOR UNKNOWN INDICATION
     Dosage: 2 WEEK
     Route: 067
  13. SERTRALINE [Concomitant]
     Active Substance: SERTRALINE HYDROCHLORIDE
     Indication: PRODUCT USED FOR UNKNOWN INDICATION
     Dosage: 100 MILLIGRAM, ONCE A DAY
  14. OXYCODONE AND ACETAMINOPHEN [Concomitant]
     Active Substance: ACETAMINOPHEN\OXYCODONE HYDROCHLORIDE
     Indication: PAIN
     Dosage: UNK UNK, AS NECESSARY, EVERY 8H AS NEEDED
  15. LORATADINE. [Concomitant]
     Active Substance: LORATADINE
     Indication: HYPERSENSITIVITY
     Dosage: 10 MILLIGRAM, AS NECESSARY
  16. DONEPEZIL. [Concomitant]
     Active Substance: DONEPEZIL
     Indication: PRODUCT USED FOR UNKNOWN INDICATION
     Dosage: 10 MILLIGRAM, NIGHTLY
  17. CLONIDINE. [Suspect]
     Active Substance: CLONIDINE
     Indication: PAIN
     Dosage: APPLIED PERI-VAGINALLY
     Route: 061
  18. GABAPENTIN 600MG [Suspect]
     Active Substance: GABAPENTIN
     Indication: PAIN
     Dosage: APPLIED THE CREAM OVER HER UPPER BODY, ARMS, PERINEUM, AND VULVA ()
     Route: 061
  19. GABAPENTIN 600MG [Suspect]
     Active Substance: GABAPENTIN
     Dosage: APPLIED PERI-VAGINALLY
     Route: 061
  20. OLOPATADINE. [Concomitant]
     Active Substance: OLOPATADINE
     Indication: PRODUCT USED FOR UNKNOWN INDICATION
     Dosage: 1 GTT, 12 HOUR, 1 DROP IN EACH EYE TWICE DAILY
     Route: 047
  21. LEVOTHYROXINE. [Concomitant]
     Active Substance: LEVOTHYROXINE
     Indication: PRODUCT USED FOR UNKNOWN INDICATION
     Dosage: 225 MICROGRAM, 1 WEEK, IN DIVIDED DOSES
  22. CLONIDINE. [Suspect]
     Active Substance: CLONIDINE
     Dosage: APPLIED THE CREAM OVER HER UPPER BODY, ARMS, PERINEUM, AND VULVA ()
     Route: 061
  23. NAPROXEN. [Concomitant]
     Active Substance: NAPROXEN
     Indication: PAIN
     Dosage: 250 MILLIGRAM, AS NECESSARY, TWICE DAILY AS NEEDED

REACTIONS (1)
  - Delirium [Recovered/Resolved]
